FAERS Safety Report 13274868 (Version 2)
Quarter: 2017Q2

REPORT INFORMATION
  Report Type: Spontaneous
  Country: TR (occurrence: TR)
  Receive Date: 20170227
  Receipt Date: 20170418
  Transmission Date: 20170830
  Serious: Yes (Death, Hospitalization)
  Sender: FDA-Public Use
  Company Number: TR-ACTELION-A-NJ2017-150444

PATIENT
  Age: 49 Year
  Sex: Male

DRUGS (2)
  1. VENTAVIS [Suspect]
     Active Substance: ILOPROST
     Indication: PRODUCT USED FOR UNKNOWN INDICATION
     Route: 055
  2. OXYGEN. [Concomitant]
     Active Substance: OXYGEN

REACTIONS (6)
  - Vein disorder [Fatal]
  - Respiratory failure [Fatal]
  - Respiratory failure [Unknown]
  - Abdominal distension [Unknown]
  - Peripheral swelling [Unknown]
  - Gait disturbance [Unknown]
